FAERS Safety Report 11038658 (Version 1)
Quarter: 2015Q2

REPORT INFORMATION
  Report Type: Spontaneous
  Country: FR (occurrence: FR)
  Receive Date: 20150416
  Receipt Date: 20150416
  Transmission Date: 20150821
  Serious: Yes (Hospitalization)
  Sender: FDA-Public Use
  Company Number: FR-PFIZER INC-2015123395

PATIENT
  Age: 8 Year
  Sex: Female
  Weight: 14.3 kg

DRUGS (11)
  1. ZYVOXID [Suspect]
     Active Substance: LINEZOLID
     Indication: STAPHYLOCOCCAL INFECTION
     Dosage: 150 MG, 2X/DAY
     Route: 048
     Dates: start: 20150317, end: 20150318
  2. VANCOMYCIN [Concomitant]
     Active Substance: VANCOMYCIN
     Indication: DEVICE RELATED INFECTION
  3. FORTUM [Concomitant]
     Active Substance: CEFTAZIDIME
     Indication: STAPHYLOCOCCAL INFECTION
     Dosage: UNK
     Dates: start: 201503, end: 201503
  4. BACLOFEN. [Concomitant]
     Active Substance: BACLOFEN
     Dosage: UNK UNK, 3X/DAY
  5. DEPAKINE [Concomitant]
     Active Substance: VALPROATE SODIUM
     Dosage: UNK UNK, 3X/DAY
  6. RIVOTRIL [Concomitant]
     Active Substance: CLONAZEPAM
     Dosage: 12 GTT, DAILY (4 DROPS IN THE MORNING, 8 DROPS IN THE EVENING)
  7. FLAGYL [Concomitant]
     Active Substance: METRONIDAZOLE\METRONIDAZOLE HYDROCHLORIDE
     Indication: STAPHYLOCOCCAL INFECTION
  8. FLAGYL [Concomitant]
     Active Substance: METRONIDAZOLE\METRONIDAZOLE HYDROCHLORIDE
     Indication: ILEUS
     Dosage: UNK
     Dates: end: 201503
  9. FORTUM [Concomitant]
     Active Substance: CEFTAZIDIME
     Indication: DEVICE RELATED INFECTION
  10. FLAGYL [Concomitant]
     Active Substance: METRONIDAZOLE\METRONIDAZOLE HYDROCHLORIDE
     Indication: DEVICE RELATED INFECTION
  11. VANCOMYCIN [Concomitant]
     Active Substance: VANCOMYCIN
     Indication: STAPHYLOCOCCAL INFECTION
     Dosage: UNK
     Dates: start: 201503, end: 201503

REACTIONS (2)
  - Dystonia [Recovered/Resolved]
  - Hyperthermia [Recovered/Resolved]

NARRATIVE: CASE EVENT DATE: 20150318
